FAERS Safety Report 20704957 (Version 1)
Quarter: 2022Q2

REPORT INFORMATION
  Report Type: Spontaneous
  Country: US (occurrence: None)
  Receive Date: 20220413
  Receipt Date: 20220413
  Transmission Date: 20220721
  Serious: No
  Sender: FDA-Public Use
  Company Number: None

PATIENT
  Sex: Female

DRUGS (1)
  1. HUMIRA [Suspect]
     Active Substance: ADALIMUMAB
     Indication: Ankylosing spondylitis
     Dosage: 40MG  EVERY 14 DAYS  SUBQ?
     Route: 058
     Dates: start: 202104

REACTIONS (4)
  - Incorrect dose administered [None]
  - Alopecia [None]
  - Device defective [None]
  - Product leakage [None]
